FAERS Safety Report 5494555-6 (Version None)
Quarter: 2007Q4

REPORT INFORMATION
  Report Type: 
  Country: None (occurrence: None)
  Receive Date: 20071022
  Receipt Date: 20071012
  Transmission Date: 20080405
  Serious: Yes (Hospitalization)
  Sender: FDA-Public Use
  Company Number: 2007SP019557

PATIENT
  Age: 41 Year
  Sex: Female

DRUGS (4)
  1. PROVENTIL-HFA [Suspect]
     Indication: ASTHMA
     Dosage: 2 DF; PRN; PO
     Route: 048
  2. WARRICK ALBUTEROL [Concomitant]
  3. SEREVENT [Concomitant]
  4. FLOVENT [Concomitant]

REACTIONS (4)
  - ASTHMA [None]
  - CONDITION AGGRAVATED [None]
  - DRUG INEFFECTIVE [None]
  - THERAPEUTIC RESPONSE UNEXPECTED WITH DRUG SUBSTITUTION [None]
